FAERS Safety Report 10082452 (Version 2)
Quarter: 2014Q2

REPORT INFORMATION
  Report Type: Report from Study
  Country: CA (occurrence: CA)
  Receive Date: 20140416
  Receipt Date: 20140524
  Transmission Date: 20141212
  Serious: Yes (Hospitalization, Other)
  Sender: FDA-Public Use
  Company Number: PHHY2014CA046668

PATIENT
  Age: 59 Year
  Sex: Female

DRUGS (3)
  1. ACLASTA [Suspect]
     Indication: OSTEOPOROSIS
     Dosage: UNK UKN, UNK
     Route: 042
     Dates: start: 20110308
  2. ACLASTA [Suspect]
     Dosage: UNK UKN, UNK
     Route: 042
     Dates: start: 20120411
  3. ACLASTA [Suspect]
     Dosage: UNK UKN, UNK
     Route: 042
     Dates: start: 20130321

REACTIONS (6)
  - Spinal fracture [Unknown]
  - Fall [Recovering/Resolving]
  - Spinal compression fracture [Recovering/Resolving]
  - Body height decreased [Recovering/Resolving]
  - Humerus fracture [Recovering/Resolving]
  - Lumbar vertebral fracture [Recovering/Resolving]
